FAERS Safety Report 9232820 (Version 1)
Quarter: 2013Q2

REPORT INFORMATION
  Report Type: Spontaneous
  Country: US (occurrence: None)
  Receive Date: 20130412
  Receipt Date: 20130412
  Transmission Date: 20140414
  Serious: Yes (Hospitalization)
  Sender: FDA-Public Use
  Company Number: 1667518

PATIENT
  Age: 64 Year
  Sex: Female

DRUGS (3)
  1. VINCRISTINE SULFATE [Suspect]
     Indication: PLASMA CELL MYELOMA
     Route: 041
  2. DEXAMETHASONE [Suspect]
     Indication: PLASMA CELL MYELOMA
     Route: 041
  3. DOXORUBICIN [Concomitant]
     Indication: PLASMA CELL MYELOMA
     Route: 041

REACTIONS (4)
  - Pancreatitis acute [None]
  - Aspiration bone marrow [None]
  - Pulmonary embolism [None]
  - Stem cell transplant [None]
